FAERS Safety Report 18635916 (Version 1)
Quarter: 2020Q4

REPORT INFORMATION
  Report Type: Spontaneous
  Country: IE (occurrence: IE)
  Receive Date: 20201218
  Receipt Date: 20201218
  Transmission Date: 20210114
  Serious: Yes (Other)
  Sender: FDA-Public Use
  Company Number: IE-PFIZER INC-2020493391

PATIENT
  Age: 15 Year
  Sex: Male
  Weight: 28 kg

DRUGS (19)
  1. SODIUM VALPROATE [Concomitant]
     Active Substance: VALPROATE SODIUM
     Indication: PRODUCT USED FOR UNKNOWN INDICATION
     Route: 065
  2. NORADRENALINE                      /00127501/ [Concomitant]
     Active Substance: NOREPINEPHRINE
     Indication: BLOOD PRESSURE MEASUREMENT
     Dosage: FREQ:1 MIN;0.01 MICROGRAM/KILOGRAM, QMINUTE
  3. PROPOFOL. [Concomitant]
     Active Substance: PROPOFOL
     Indication: INDUCTION OF ANAESTHESIA
     Dosage: 3 MILLIGRAM/KILOGRAM
     Route: 042
  4. REMIFENTANIL [Concomitant]
     Active Substance: REMIFENTANIL
     Dosage: 3 MICROGRAM/KILOGRAM
     Route: 040
  5. TRANEXAMIC ACID. [Concomitant]
     Active Substance: TRANEXAMIC ACID
     Indication: PRODUCT USED FOR UNKNOWN INDICATION
     Dosage: FREQ:1 H;10 MILLIGRAM/KILOGRAM, QH
     Route: 042
  6. PROPOFOL. [Concomitant]
     Active Substance: PROPOFOL
     Dosage: MAINTAINED WITH TARGETED CONTROL INFUSION WITH A PLASMA TARGET OF BETWEEN 3 AND 5 MICROG PER ML
     Route: 042
  7. LIDOCAINE. [Concomitant]
     Active Substance: LIDOCAINE
     Dosage: 1 MILLIGRAM/KILOGRAM
     Route: 040
  8. HARTMANN^S SOLUTION [Concomitant]
     Active Substance: CALCIUM CHLORIDE\POTASSIUM CHLORIDE\SODIUM CHLORIDE\SODIUM LACTATE
     Indication: FLUID REPLACEMENT
     Dosage: 10 ML/KG
     Route: 040
  9. LEVETIRACETAM. [Concomitant]
     Active Substance: LEVETIRACETAM
     Indication: PRODUCT USED FOR UNKNOWN INDICATION
     Route: 065
  10. GENTAMICIN. [Concomitant]
     Active Substance: GENTAMICIN
     Indication: ANTIBIOTIC PROPHYLAXIS
     Route: 042
  11. KETAMINE HCL [Suspect]
     Active Substance: KETAMINE HYDROCHLORIDE
     Dosage: 2 TO 10 MICROG/KG/MIN
     Route: 042
  12. KETAMINE HCL [Suspect]
     Active Substance: KETAMINE HYDROCHLORIDE
     Indication: ANALGESIC THERAPY
     Dosage: FREQ:1 MIN;10 MICROGRAM/KILOGRAM, QMINUTE
     Route: 042
  13. TRANEXAMIC ACID. [Concomitant]
     Active Substance: TRANEXAMIC ACID
     Dosage: 15 MILLIGRAM/KILOGRAM
     Route: 042
  14. LIDOCAINE. [Concomitant]
     Active Substance: LIDOCAINE
     Indication: ANALGESIC THERAPY
     Dosage: FREQ:1 H;1.5 MILLIGRAM/KILOGRAM, QH
     Route: 042
  15. REMIFENTANIL [Concomitant]
     Active Substance: REMIFENTANIL
     Indication: ANAESTHESIA
     Dosage: AT 0.01 TO 0.3 MICROG/KG/MIN
     Route: 042
  16. CEFUROXIME. [Concomitant]
     Active Substance: CEFUROXIME
     Indication: ANTIBIOTIC PROPHYLAXIS
     Route: 042
  17. NORADRENALINE                      /00127501/ [Concomitant]
     Active Substance: NOREPINEPHRINE
     Indication: DRUG THERAPY
  18. HARTMANN^S SOLUTION [Concomitant]
     Active Substance: CALCIUM CHLORIDE\POTASSIUM CHLORIDE\SODIUM CHLORIDE\SODIUM LACTATE
     Indication: DRUG THERAPY
     Dosage: 55 ML/KG (TOTAL)
     Route: 040
  19. ESOMEPRAZOLE. [Concomitant]
     Active Substance: ESOMEPRAZOLE MAGNESIUM
     Indication: PRODUCT USED FOR UNKNOWN INDICATION
     Route: 065

REACTIONS (1)
  - Diabetes insipidus [Unknown]
